FAERS Safety Report 7103125-5 (Version None)
Quarter: 2010Q4

REPORT INFORMATION
  Report Type: 
  Country: None (occurrence: None)
  Receive Date: 20101115
  Receipt Date: 20101108
  Transmission Date: 20110411
  Serious: Yes (Other)
  Sender: FDA-Public Use
  Company Number: US-SANOFI-AVENTIS-2010SA065816

PATIENT
  Age: 64 Year
  Sex: Male
  Weight: 134.26 kg

DRUGS (2)
  1. LANTUS [Suspect]
     Dosage: DOSE:10 UNIT(S)
     Route: 058
  2. OPTICLICK [Suspect]
     Dates: start: 20040101

REACTIONS (3)
  - ASTHENIA [None]
  - PROCEDURAL COMPLICATION [None]
  - WOUND INFECTION STAPHYLOCOCCAL [None]
